FAERS Safety Report 16315005 (Version 1)
Quarter: 2019Q2

REPORT INFORMATION
  Report Type: Spontaneous
  Country: US (occurrence: US)
  Receive Date: 20190515
  Receipt Date: 20190515
  Transmission Date: 20190711
  Serious: Yes (Hospitalization)
  Sender: FDA-Public Use
  Company Number: US-BAXTER-2019BAX009622

PATIENT
  Age: 86 Year
  Sex: Female

DRUGS (2)
  1. CEFEPIME [Suspect]
     Active Substance: CEFEPIME HYDROCHLORIDE
     Indication: EOSINOPHILIC PNEUMONIA
     Route: 065
  2. VANCOMYCIN [Concomitant]
     Active Substance: VANCOMYCIN
     Indication: EOSINOPHILIC PNEUMONIA
     Route: 065

REACTIONS (1)
  - Drug-induced liver injury [Recovering/Resolving]
